FAERS Safety Report 23294253 (Version 2)
Quarter: 2024Q1

REPORT INFORMATION
  Report Type: Spontaneous
  Country: US (occurrence: US)
  Receive Date: 20231213
  Receipt Date: 20240219
  Transmission Date: 20240410
  Serious: Yes (Other)
  Sender: FDA-Public Use
  Company Number: US-ABBVIE-5533850

PATIENT
  Age: 37 Year
  Sex: Female

DRUGS (2)
  1. LILETTA [Suspect]
     Active Substance: LEVONORGESTREL
     Indication: Product used for unknown indication
     Dosage: TIME INTERVAL: AS NECESSARY: FORM STRENGTH: 52MG IUD
     Route: 015
     Dates: start: 20231122, end: 20231122
  2. LILETTA [Suspect]
     Active Substance: LEVONORGESTREL
     Dosage: TIME INTERVAL: AS NECESSARY: FORM STRENGTH: 52MG IUD
     Route: 015
     Dates: start: 20231127, end: 20231127

REACTIONS (3)
  - Uterine perforation [Unknown]
  - Embedded device [Recovered/Resolved]
  - Uterine spasm [Unknown]

NARRATIVE: CASE EVENT DATE: 20231122
